FAERS Safety Report 5828412-X (Version None)
Quarter: 2008Q3

REPORT INFORMATION
  Report Type: 
  Country: None (occurrence: None)
  Receive Date: 20080731
  Receipt Date: 20080725
  Transmission Date: 20090109
  Serious: Yes (Death, Hospitalization, Other)
  Sender: FDA-Public Use
  Company Number: MX-BAYER-200813213LA

PATIENT
  Age: 70 Year
  Sex: Male
  Weight: 82 kg

DRUGS (12)
  1. SORAFENIB [Suspect]
     Indication: NON-SMALL CELL LUNG CANCER
     Route: 065
     Dates: start: 20071122, end: 20080114
  2. GEMCITABINE [Suspect]
     Indication: NON-SMALL CELL LUNG CANCER
     Route: 042
     Dates: start: 20071122, end: 20080110
  3. CISPLATIN [Suspect]
     Indication: NON-SMALL CELL LUNG CANCER
     Route: 042
     Dates: start: 20071122, end: 20080103
  4. LOSARTAN POTASSIUM [Concomitant]
     Indication: HYPERTENSION
     Route: 048
     Dates: start: 20071108, end: 20080114
  5. GLIBENCLAMIDE [Concomitant]
     Indication: DIABETES MELLITUS
     Route: 048
     Dates: start: 20071108, end: 20080114
  6. METFORMIN HCL [Concomitant]
     Indication: DIABETES MELLITUS
     Route: 048
     Dates: start: 20071108, end: 20080114
  7. AMLODIPINE [Concomitant]
     Indication: HYPERTENSION
     Route: 065
     Dates: start: 20071108, end: 20080114
  8. PROPAFENONE HCL [Concomitant]
     Indication: HYPERTENSION
     Route: 048
     Dates: start: 20071108, end: 20080114
  9. IPRATROPIUM BROMIDE [Concomitant]
     Indication: DYSPNOEA
     Route: 048
     Dates: start: 20071108, end: 20080114
  10. OMEPRAZOLE [Concomitant]
     Indication: PROPHYLAXIS
     Route: 048
     Dates: start: 20071108, end: 20080114
  11. ACETAMINOPHEN [Concomitant]
     Indication: DYSPNOEA
     Route: 048
     Dates: start: 20071108, end: 20080114
  12. CODEINE SUL TAB [Concomitant]
     Indication: DYSPNOEA
     Route: 048
     Dates: start: 20071108, end: 20080114

REACTIONS (6)
  - CARDIOPULMONARY FAILURE [None]
  - NEUTROPENIA [None]
  - PEPTIC ULCER [None]
  - PNEUMONIA [None]
  - RESPIRATORY DISTRESS [None]
  - UPPER GASTROINTESTINAL HAEMORRHAGE [None]
